FAERS Safety Report 24837544 (Version 3)
Quarter: 2025Q1

REPORT INFORMATION
  Report Type: Spontaneous
  Country: CA (occurrence: CA)
  Receive Date: 20250113
  Receipt Date: 20250123
  Transmission Date: 20250408
  Serious: Yes (Other)
  Sender: PFIZER
  Company Number: CA-PFIZER INC-202300217969

PATIENT
  Age: 76 Year
  Sex: Male

DRUGS (7)
  1. RUXIENCE [Suspect]
     Active Substance: RITUXIMAB-PVVR
     Indication: Granulomatosis with polyangiitis
     Route: 042
     Dates: start: 20230630, end: 20230630
  2. RUXIENCE [Suspect]
     Active Substance: RITUXIMAB-PVVR
     Route: 042
     Dates: start: 20231212
  3. RUXIENCE [Suspect]
     Active Substance: RITUXIMAB-PVVR
     Route: 042
     Dates: start: 20240611, end: 20240611
  4. RUXIENCE [Suspect]
     Active Substance: RITUXIMAB-PVVR
     Route: 042
     Dates: start: 20250117
  5. AZATHIOPRINE [Concomitant]
     Active Substance: AZATHIOPRINE
  6. GABAPENTIN [Concomitant]
     Active Substance: GABAPENTIN
  7. PREDNISONE [Concomitant]
     Active Substance: PREDNISONE

REACTIONS (5)
  - Foot fracture [Recovering/Resolving]
  - Fall [Recovering/Resolving]
  - Pain in extremity [Unknown]
  - Condition aggravated [Not Recovered/Not Resolved]
  - Off label use [Unknown]

NARRATIVE: CASE EVENT DATE: 20230630
